FAERS Safety Report 6410182-8 (Version None)
Quarter: 2009Q4

REPORT INFORMATION
  Report Type: 
  Country: None (occurrence: None)
  Receive Date: 20091022
  Receipt Date: 20091013
  Transmission Date: 20100525
  Serious: Yes (Death, Hospitalization)
  Sender: FDA-Public Use
  Company Number: JP-BAXTER-2009BH016217

PATIENT
  Age: 92 Year
  Sex: Female
  Weight: 44 kg

DRUGS (1)
  1. DIANEAL [Suspect]
     Indication: PERITONEAL DIALYSIS
     Route: 033
     Dates: start: 20090129, end: 20091013

REACTIONS (2)
  - ABDOMINAL PAIN UPPER [None]
  - MARASMUS [None]
